FAERS Safety Report 4678924-X (Version None)
Quarter: 2005Q2

REPORT INFORMATION
  Report Type: 
  Country: None (occurrence: None)
  Receive Date: 20050531
  Receipt Date: 20050517
  Transmission Date: 20051028
  Serious: Yes (Other)
  Sender: FDA-Public Use
  Company Number: 2005075909

PATIENT
  Sex: Male
  Weight: 72.5755 kg

DRUGS (3)
  1. ROGAINE [Suspect]
     Indication: ALOPECIA
     Dosage: 0.66-0.75 ML BID, TOPICAL
     Route: 061
     Dates: start: 19990101
  2. ROGAINE [Suspect]
     Indication: ALOPECIA
     Dosage: TOPICAL
     Route: 061
     Dates: start: 19950101
  3. ATENOLOL [Suspect]
     Indication: HEART RATE IRREGULAR
     Dosage: 0.25 MG,

REACTIONS (3)
  - ALOPECIA [None]
  - ARRHYTHMIA [None]
  - CONDITION AGGRAVATED [None]
